FAERS Safety Report 7766956-4 (Version None)
Quarter: 2011Q3

REPORT INFORMATION
  Report Type: 
  Country: None (occurrence: None)
  Receive Date: 20110922
  Receipt Date: 20110916
  Transmission Date: 20111222
  Serious: Yes (Hospitalization)
  Sender: FDA-Public Use
  Company Number: CA-ABBOTT-11P-028-0852118-00

PATIENT
  Sex: Female
  Weight: 47.67 kg

DRUGS (4)
  1. HUMIRA [Suspect]
     Indication: CROHN'S DISEASE
     Route: 058
     Dates: start: 20110730
  2. IMIPENEM [Concomitant]
     Indication: CYSTITIS
     Route: 042
     Dates: start: 20110904
  3. HUMIRA [Suspect]
     Dates: start: 20110830
  4. UNKNOWN ANTIBIOTIC [Concomitant]
     Indication: CYSTITIS
     Route: 048
     Dates: start: 20110801, end: 20110901

REACTIONS (6)
  - CROHN'S DISEASE [None]
  - DRUG DOSE OMISSION [None]
  - ABDOMINAL PAIN [None]
  - IMMUNE SYSTEM DISORDER [None]
  - PYREXIA [None]
  - CYSTITIS [None]
